FAERS Safety Report 10523795 (Version 2)
Quarter: 2014Q4

REPORT INFORMATION
  Report Type: Spontaneous
  Country: GR (occurrence: GR)
  Receive Date: 20141017
  Receipt Date: 20141111
  Transmission Date: 20150528
  Serious: Yes (Hospitalization, Other)
  Sender: FDA-Public Use
  Company Number: GR-ACCORD-026472

PATIENT
  Age: 65 Year
  Sex: Male

DRUGS (1)
  1. METHOTREXATE [Suspect]
     Active Substance: METHOTREXATE
     Indication: PSORIATIC ARTHROPATHY
     Dosage: RECEIVED FOR APPROXIMATELY 2 YEARS.

REACTIONS (1)
  - Visceral leishmaniasis [Recovered/Resolved]
